FAERS Safety Report 5248001-8 (Version None)
Quarter: 2007Q1

REPORT INFORMATION
  Report Type: 
  Country: None (occurrence: None)
  Receive Date: 20070226
  Receipt Date: 20070226
  Transmission Date: 20070707
  Serious: Yes (Hospitalization, Other)
  Sender: FDA-Public Use
  Company Number: None

PATIENT
  Age: 15 Year
  Sex: Male
  Weight: 83.9154 kg

DRUGS (1)
  1. LEXAPRO [Suspect]
     Indication: SOCIAL PHOBIA
     Dosage: 20 MG EVERY EVENING BUCCAL
     Route: 002
     Dates: start: 20050915, end: 20070224

REACTIONS (14)
  - ARRHYTHMIA [None]
  - BRADYCARDIA [None]
  - DEPRESSED LEVEL OF CONSCIOUSNESS [None]
  - DRUG WITHDRAWAL SYNDROME [None]
  - FATIGUE [None]
  - HEART RATE IRREGULAR [None]
  - HYPERSOMNIA [None]
  - HYPOTENSION [None]
  - MOOD ALTERED [None]
  - MUSCLE TWITCHING [None]
  - PERSONALITY CHANGE [None]
  - SLEEP APNOEA SYNDROME [None]
  - TREMOR [None]
  - VENTRICULAR EXTRASYSTOLES [None]
